FAERS Safety Report 14797868 (Version 2)
Quarter: 2018Q2

REPORT INFORMATION
  Report Type: Spontaneous
  Country: US (occurrence: US)
  Receive Date: 20180424
  Receipt Date: 20180531
  Transmission Date: 20180711
  Serious: Yes (Other)
  Sender: FDA-Public Use
  Company Number: US-ABBVIE-18K-163-2327593-00

PATIENT
  Age: 59 Year
  Sex: Male
  Weight: 83.54 kg

DRUGS (11)
  1. METOPROLOL. [Concomitant]
     Active Substance: METOPROLOL
     Indication: HYPERTENSION
  2. ENBREL [Suspect]
     Active Substance: ETANERCEPT
     Indication: RHEUMATOID ARTHRITIS
     Route: 065
     Dates: start: 2008, end: 201802
  3. PREDNISONE. [Concomitant]
     Active Substance: PREDNISONE
     Dates: start: 2018, end: 2018
  4. REMICADE [Suspect]
     Active Substance: INFLIXIMAB
     Indication: RHEUMATOID ARTHRITIS
     Route: 065
     Dates: end: 2001
  5. MTX [Suspect]
     Active Substance: METHOTREXATE SODIUM
     Indication: RHEUMATOID ARTHRITIS
     Route: 065
  6. PREDNISONE. [Concomitant]
     Active Substance: PREDNISONE
     Indication: PRODUCT USED FOR UNKNOWN INDICATION
     Dates: start: 20180122, end: 2018
  7. HUMIRA [Suspect]
     Active Substance: ADALIMUMAB
     Indication: RHEUMATOID ARTHRITIS
     Route: 058
  8. PREDNISONE. [Concomitant]
     Active Substance: PREDNISONE
     Dates: start: 20180326
  9. XELJANZ XR [Concomitant]
     Active Substance: TOFACITINIB CITRATE
     Indication: PRODUCT USED FOR UNKNOWN INDICATION
     Route: 065
  10. ENBREL [Suspect]
     Active Substance: ETANERCEPT
     Route: 065
     Dates: start: 201802
  11. PREDNISONE. [Concomitant]
     Active Substance: PREDNISONE
     Dates: start: 2018, end: 201803

REACTIONS (11)
  - Inappropriate schedule of drug administration [Unknown]
  - Musculoskeletal discomfort [Unknown]
  - Loss of personal independence in daily activities [Unknown]
  - Drug hypersensitivity [Unknown]
  - Drug effect decreased [Unknown]
  - Swollen tongue [Recovered/Resolved]
  - Mobility decreased [Not Recovered/Not Resolved]
  - Rheumatoid arthritis [Recovered/Resolved]
  - Rheumatoid arthritis [Not Recovered/Not Resolved]
  - Swollen tongue [Recovered/Resolved]
  - Drug ineffective [Unknown]

NARRATIVE: CASE EVENT DATE: 2008
